FAERS Safety Report 6299686-9 (Version None)
Quarter: 2009Q3

REPORT INFORMATION
  Report Type: 
  Country: None (occurrence: None)
  Receive Date: 20090805
  Receipt Date: 20090805
  Transmission Date: 20100115
  Serious: Yes (Hospitalization)
  Sender: FDA-Public Use
  Company Number: None

PATIENT
  Age: 63 Year
  Sex: Male
  Weight: 176 kg

DRUGS (1)
  1. TRAMADOL HCL [Suspect]
     Dosage: 50 MG PRN PO
     Route: 048
     Dates: start: 20090526, end: 20090702

REACTIONS (3)
  - AMMONIA INCREASED [None]
  - HALLUCINATIONS, MIXED [None]
  - MENTAL STATUS CHANGES [None]
